FAERS Safety Report 14601060 (Version 3)
Quarter: 2019Q2

REPORT INFORMATION
  Report Type: Report from Study
  Country: US (occurrence: US)
  Receive Date: 20180305
  Receipt Date: 20190408
  Transmission Date: 20190711
  Serious: Yes (Hospitalization)
  Sender: FDA-Public Use
  Company Number: US-ACTELION-A-NJ2018-168296

PATIENT
  Age: 81 Year
  Sex: Male

DRUGS (11)
  1. METOPROLOL. [Concomitant]
     Active Substance: METOPROLOL
  2. ADCIRCA [Concomitant]
     Active Substance: TADALAFIL
  3. LOVASTATIN. [Concomitant]
     Active Substance: LOVASTATIN
  4. LOSARTAN. [Concomitant]
     Active Substance: LOSARTAN
  5. DIAZEPAM. [Concomitant]
     Active Substance: DIAZEPAM
  6. CLONIDINE. [Concomitant]
     Active Substance: CLONIDINE
  7. POTASSIUM [Concomitant]
     Active Substance: POTASSIUM
  8. MULTIVITAMIN [Concomitant]
     Active Substance: VITAMINS
  9. OPSUMIT [Suspect]
     Active Substance: MACITENTAN
     Indication: PULMONARY ARTERIAL HYPERTENSION
     Dosage: 10 MG, QD
     Route: 048
  10. BUMEX [Concomitant]
     Active Substance: BUMETANIDE
  11. WARFARIN [Concomitant]
     Active Substance: WARFARIN

REACTIONS (11)
  - Urinary tract infection [Recovered/Resolved]
  - Dysphagia [Not Recovered/Not Resolved]
  - Dyspnoea [Unknown]
  - Rectal haemorrhage [Unknown]
  - Malaise [Unknown]
  - Nasal congestion [Not Recovered/Not Resolved]
  - Dry throat [Not Recovered/Not Resolved]
  - Sepsis [Recovered/Resolved]
  - Headache [Not Recovered/Not Resolved]
  - Dry mouth [Not Recovered/Not Resolved]
  - Dyspnoea exertional [Unknown]

NARRATIVE: CASE EVENT DATE: 201610
